FAERS Safety Report 9112670 (Version 1)
Quarter: 2013Q1

REPORT INFORMATION
  Report Type: Spontaneous
  Country: US (occurrence: US)
  Receive Date: 20130211
  Receipt Date: 20130211
  Transmission Date: 20140127
  Serious: No
  Sender: FDA-Public Use
  Company Number: US-ASTRAZENECA-2013SE07932

PATIENT
  Sex: Male

DRUGS (3)
  1. CRESTOR [Suspect]
     Indication: BLOOD CHOLESTEROL
     Route: 048
  2. PRAVACHOL [Concomitant]
  3. NIACIN [Concomitant]

REACTIONS (4)
  - High density lipoprotein decreased [Unknown]
  - Low density lipoprotein increased [Unknown]
  - Drug effect incomplete [Unknown]
  - Intentional drug misuse [Unknown]
